FAERS Safety Report 7399380-7 (Version None)
Quarter: 2011Q1

REPORT INFORMATION
  Report Type: 
  Country: None (occurrence: None)
  Receive Date: 20110328
  Receipt Date: 20110320
  Transmission Date: 20110831
  Serious: Yes (Hospitalization, Other)
  Sender: FDA-Public Use
  Company Number: 2011SP012334

PATIENT
  Sex: Female

DRUGS (4)
  1. INTRON A [Suspect]
     Indication: PRODUCT USED FOR UNKNOWN INDICATION
     Dosage: 40 MIU; IV, IV, 12 MIU; TIW;, 9 MIU;
     Route: 042
     Dates: start: 20100326
  2. INTRON A [Suspect]
     Indication: PRODUCT USED FOR UNKNOWN INDICATION
     Dosage: 40 MIU; IV, IV, 12 MIU; TIW;, 9 MIU;
     Route: 042
     Dates: start: 20091214
  3. INTRON A [Suspect]
     Indication: PRODUCT USED FOR UNKNOWN INDICATION
     Dosage: 40 MIU; IV, IV, 12 MIU; TIW;, 9 MIU;
     Route: 042
     Dates: end: 20100106
  4. INTRON A [Suspect]
     Indication: PRODUCT USED FOR UNKNOWN INDICATION
     Dosage: 40 MIU; IV, IV, 12 MIU; TIW;, 9 MIU;
     Route: 042
     Dates: start: 20100520, end: 20110219

REACTIONS (10)
  - DRUG DOSE OMISSION [None]
  - THYROID FUNCTION TEST ABNORMAL [None]
  - AMENORRHOEA [None]
  - NEUTROPENIA [None]
  - NAUSEA [None]
  - APPENDICITIS [None]
  - RASH [None]
  - INFLUENZA LIKE ILLNESS [None]
  - LACRIMATION INCREASED [None]
  - FATIGUE [None]
